FAERS Safety Report 5983019-9 (Version None)
Quarter: 2008Q4

REPORT INFORMATION
  Report Type: 
  Country: None (occurrence: None)
  Receive Date: 20081208
  Receipt Date: 20080717
  Transmission Date: 20090506
  Serious: No
  Sender: FDA-Public Use
  Company Number: US-AMGEN-KDL293966

PATIENT
  Sex: Female

DRUGS (4)
  1. ENBREL [Suspect]
     Indication: RHEUMATOID ARTHRITIS
     Route: 058
     Dates: start: 20080201
  2. METHOTREXATE [Concomitant]
     Route: 048
  3. FOLIC ACID [Concomitant]
  4. IBUPROFEN TABLETS [Concomitant]

REACTIONS (3)
  - INJECTION SITE ERYTHEMA [None]
  - INJECTION SITE REACTION [None]
  - INJECTION SITE URTICARIA [None]
